FAERS Safety Report 7995928-X (Version None)
Quarter: 2011Q4

REPORT INFORMATION
  Report Type: 
  Country: None (occurrence: None)
  Receive Date: 20111220
  Receipt Date: 20111212
  Transmission Date: 20120403
  Serious: Yes (Hospitalization)
  Sender: FDA-Public Use
  Company Number: FI-ABBOTT-11P-055-0882541-00

PATIENT
  Sex: Female

DRUGS (5)
  1. HUMIRA [Suspect]
     Indication: JUVENILE ARTHRITIS
     Route: 058
     Dates: start: 20100113, end: 20111212
  2. PANACOD [Concomitant]
     Indication: PRODUCT USED FOR UNKNOWN INDICATION
     Dosage: WHEN NEEDED
     Route: 048
  3. FOLIC ACID [Concomitant]
     Indication: JUVENILE ARTHRITIS
     Route: 048
     Dates: start: 20070316
  4. NALTREXONE HYDROCHLORIDE [Concomitant]
     Indication: JUVENILE ARTHRITIS
     Dates: start: 20070316
  5. IBUPROFEN [Concomitant]
     Indication: PRODUCT USED FOR UNKNOWN INDICATION
     Dosage: WHEN NEEDED
     Route: 048

REACTIONS (8)
  - NEUROPATHY PERIPHERAL [None]
  - HYPOAESTHESIA [None]
  - HYPERSENSITIVITY [None]
  - PAIN [None]
  - GAIT DISTURBANCE [None]
  - BACK PAIN [None]
  - HYPERAESTHESIA [None]
  - POLYNEUROPATHY [None]
